FAERS Safety Report 8567867-7 (Version None)
Quarter: 2012Q3

REPORT INFORMATION
  Report Type: 
  Country: None (occurrence: None)
  Receive Date: 20120803
  Receipt Date: 20111207
  Transmission Date: 20120928
  Serious: No
  Sender: FDA-Public Use
  Company Number: US-BRISTOL-MYERS SQUIBB COMPANY-16280505

PATIENT
  Age: 71 Year
  Sex: Female

DRUGS (3)
  1. GLUCOVANCE [Suspect]
  2. LANTUS [Suspect]
     Indication: DIABETES MELLITUS
     Dosage: 1DF:10 UNITS INJ SOLUTION 100 IN/ML
     Route: 058
     Dates: start: 20111101
  3. BYETTA [Suspect]

REACTIONS (1)
  - BLOOD GLUCOSE INCREASED [None]
